FAERS Safety Report 7470992-5 (Version None)
Quarter: 2011Q2

REPORT INFORMATION
  Report Type: 
  Country: None (occurrence: None)
  Receive Date: 20110506
  Receipt Date: 20110506
  Transmission Date: 20111010
  Serious: Yes (Other)
  Sender: FDA-Public Use
  Company Number: None

PATIENT
  Age: 76 Year
  Sex: Female
  Weight: 76.2043 kg

DRUGS (1)
  1. MECLIZINE [Suspect]
     Indication: VERTIGO
     Dosage: 1 TABLET THREE TIMES A DAY PO
     Route: 048
     Dates: start: 20110414, end: 20110416

REACTIONS (2)
  - DRUG INEFFECTIVE [None]
  - PRODUCT SUBSTITUTION ISSUE [None]
